FAERS Safety Report 10416575 (Version 1)
Quarter: 2014Q3

REPORT INFORMATION
  Report Type: Spontaneous
  Country: US (occurrence: None)
  Receive Date: 20140826
  Receipt Date: 20140826
  Transmission Date: 20150326
  Serious: Yes (Other)
  Sender: FDA-Public Use
  Company Number: 2014-US-010280

PATIENT
  Age: 34 Year
  Sex: Female

DRUGS (8)
  1. LUVOX CR [Suspect]
     Active Substance: FLUVOXAMINE MALEATE
     Indication: DEPRESSION
     Route: 048
     Dates: start: 2009, end: 20140530
  2. EFFEXOR [Concomitant]
     Active Substance: VENLAFAXINE HYDROCHLORIDE
  3. LUVOX CR [Suspect]
     Active Substance: FLUVOXAMINE MALEATE
     Indication: ANXIETY
     Route: 048
     Dates: start: 2009, end: 20140530
  4. LUVOX CR [Suspect]
     Active Substance: FLUVOXAMINE MALEATE
     Indication: OBSESSIVE-COMPULSIVE DISORDER
     Route: 048
     Dates: start: 2009, end: 20140530
  5. ATIVAN [Concomitant]
     Active Substance: LORAZEPAM
  6. ABILIFY [Suspect]
     Active Substance: ARIPIPRAZOLE
     Indication: PRODUCT USED FOR UNKNOWN INDICATION
     Dates: end: 201310
  7. LOMOTIL [Concomitant]
     Active Substance: ATROPINE SULFATE\DIPHENOXYLATE HYDROCHLORIDE
  8. LUVOX CR [Suspect]
     Active Substance: FLUVOXAMINE MALEATE
     Indication: PHOBIA
     Route: 048
     Dates: start: 2009, end: 20140530

REACTIONS (13)
  - Eyelid ptosis [None]
  - Withdrawal syndrome [None]
  - Pneumonia [None]
  - Palpitations [None]
  - Decreased appetite [None]
  - Weight decreased [None]
  - Systemic mastocytosis [None]
  - Sleep apnoea syndrome [None]
  - Type 2 diabetes mellitus [None]
  - Hypoaesthesia [None]
  - Paraesthesia [None]
  - Dysarthria [None]
  - Somnolence [None]
